FAERS Safety Report 9457640 (Version 2)
Quarter: 2019Q3

REPORT INFORMATION
  Report Type: Spontaneous
  Country: US (occurrence: US)
  Receive Date: 20130814
  Receipt Date: 20190802
  Transmission Date: 20191005
  Serious: No
  Sender: FDA-Public Use
  Company Number: US-PFIZER INC-2013231962

PATIENT
  Age: 58 Year
  Sex: Male
  Weight: 136 kg

DRUGS (3)
  1. LYRICA [Concomitant]
     Active Substance: PREGABALIN
     Dosage: UNK
  2. VIAGRA [Suspect]
     Active Substance: SILDENAFIL CITRATE
     Indication: SEXUALLY ACTIVE
     Dosage: UNK
  3. VIAGRA [Suspect]
     Active Substance: SILDENAFIL CITRATE
     Dosage: 50 MG, AS NEEDED
     Route: 048

REACTIONS (6)
  - Eye disorder [Unknown]
  - Penile pain [Not Recovered/Not Resolved]
  - Blood glucose increased [Unknown]
  - Nasal congestion [Unknown]
  - Asthenia [Unknown]
  - Dyspareunia [Unknown]
